FAERS Safety Report 9299248 (Version 1)
Quarter: 2013Q2

REPORT INFORMATION
  Report Type: Spontaneous
  Country: GB (occurrence: GB)
  Receive Date: 20130520
  Receipt Date: 20130520
  Transmission Date: 20140414
  Serious: Yes (Other)
  Sender: FDA-Public Use
  Company Number: GB-ALEXION PHARMACEUTICALS INC.-A201301107

PATIENT
  Age: 6 Month
  Sex: Female

DRUGS (5)
  1. SOLIRIS 300MG [Suspect]
     Indication: HAEMOLYTIC URAEMIC SYNDROME
     Dosage: 300 MG, QW FOR FIRST TWO DOSES
     Route: 042
  2. SOLIRIS 300MG [Suspect]
     Dosage: 300 MG, Q3W
     Route: 042
  3. SOLIRIS 300MG [Suspect]
     Dosage: 300 MG, Q2W
     Route: 042
  4. ANTIBIOTICS [Concomitant]
     Indication: SEPSIS
     Route: 042
  5. AMLODIPINE [Concomitant]
     Indication: BLOOD PRESSURE INCREASED

REACTIONS (2)
  - Blood lactate dehydrogenase increased [Not Recovered/Not Resolved]
  - Complement split products increased [Not Recovered/Not Resolved]
